FAERS Safety Report 6082236-X (Version None)
Quarter: 2009Q1

REPORT INFORMATION
  Report Type: 
  Country: None (occurrence: None)
  Receive Date: 20090218
  Receipt Date: 20090206
  Transmission Date: 20090719
  Serious: Yes (Hospitalization)
  Sender: FDA-Public Use
  Company Number: US-BIOGENIDEC-2008BI027689

PATIENT
  Sex: Female
  Weight: 56 kg

DRUGS (2)
  1. TYSABRI [Suspect]
     Indication: MULTIPLE SCLEROSIS
     Route: 042
     Dates: start: 20080805, end: 20080908
  2. CORTICOSTEROIDS [Concomitant]
     Indication: MULTIPLE SCLEROSIS RELAPSE
     Route: 042

REACTIONS (2)
  - ASPIRATION [None]
  - MULTIPLE SCLEROSIS RELAPSE [None]
